FAERS Safety Report 11425011 (Version 1)
Quarter: 2015Q3

REPORT INFORMATION
  Report Type: Spontaneous
  Country: US (occurrence: US)
  Receive Date: 20150821
  Receipt Date: 20150821
  Transmission Date: 20151125
  Serious: No
  Sender: FDA-Public Use
  Company Number: US-ELI_LILLY_AND_COMPANY-US201301010004

PATIENT
  Sex: Female

DRUGS (5)
  1. HUMULIN N [Suspect]
     Active Substance: INSULIN HUMAN
     Indication: DIABETES MELLITUS
     Dosage: 48 U, EACH MORNING
  2. HUMULIN R [Suspect]
     Active Substance: INSULIN HUMAN
     Indication: DIABETES MELLITUS
     Dosage: 22 U, EACH MORNING
  3. HUMULIN N [Suspect]
     Active Substance: INSULIN HUMAN
     Dosage: 42 U, EACH EVENING
  4. HUMULIN R [Suspect]
     Active Substance: INSULIN HUMAN
     Dosage: 36 U, EACH EVENING
  5. NOVOLIN R [Concomitant]
     Active Substance: INSULIN HUMAN

REACTIONS (2)
  - Rash pruritic [Not Recovered/Not Resolved]
  - Headache [Unknown]
